FAERS Safety Report 25239192 (Version 1)
Quarter: 2025Q2

REPORT INFORMATION
  Report Type: Spontaneous
  Country: ES (occurrence: ES)
  Receive Date: 20250425
  Receipt Date: 20250425
  Transmission Date: 20250716
  Serious: Yes (Hospitalization, Other)
  Sender: STRIDES
  Company Number: ES-STRIDES ARCOLAB LIMITED-2025SP005052

PATIENT
  Age: 54 Year
  Sex: Male

DRUGS (2)
  1. TENOFOVIR [Suspect]
     Active Substance: TENOFOVIR
     Indication: Chronic hepatitis B
     Route: 065
     Dates: start: 2012
  2. TENOFOVIR [Suspect]
     Active Substance: TENOFOVIR
     Indication: Hepatitis B e antigen negative

REACTIONS (6)
  - Hepatic encephalopathy [Unknown]
  - Rebound effect [Unknown]
  - Withdrawal syndrome [Unknown]
  - Hepatitis B reactivation [Unknown]
  - Acute hepatitis B [Unknown]
  - Drug ineffective [Unknown]
